FAERS Safety Report 11918863 (Version 2)
Quarter: 2016Q3

REPORT INFORMATION
  Report Type: Spontaneous
  Country: US (occurrence: US)
  Receive Date: 20160115
  Receipt Date: 20160907
  Transmission Date: 20161109
  Serious: Yes (Other)
  Sender: FDA-Public Use
  Company Number: US-JNJFOC-20151204856

PATIENT
  Age: 51 Year
  Sex: Female

DRUGS (45)
  1. LEVAQUIN [Suspect]
     Active Substance: LEVOFLOXACIN
     Indication: DYSURIA
     Route: 048
     Dates: start: 20050301, end: 20050503
  2. LEVAQUIN [Suspect]
     Active Substance: LEVOFLOXACIN
     Indication: URINARY RETENTION
     Route: 048
     Dates: start: 200412
  3. CIPROFLOXACIN. [Suspect]
     Active Substance: CIPROFLOXACIN
     Indication: OCULAR HYPERAEMIA
     Route: 065
     Dates: start: 20120719, end: 20130927
  4. CIPROFLOXACIN. [Suspect]
     Active Substance: CIPROFLOXACIN
     Indication: URINARY RETENTION
     Route: 065
     Dates: start: 20120719, end: 20130927
  5. CIPROFLOXACIN. [Suspect]
     Active Substance: CIPROFLOXACIN
     Indication: NEPHROLITHIASIS
     Route: 065
     Dates: start: 200509
  6. CIPROFLOXACIN. [Suspect]
     Active Substance: CIPROFLOXACIN
     Indication: NEPHROLITHIASIS
     Route: 065
     Dates: start: 20061030, end: 20061031
  7. LEVAQUIN [Suspect]
     Active Substance: LEVOFLOXACIN
     Indication: URINARY RETENTION
     Route: 048
     Dates: start: 20050301, end: 20050503
  8. LEVAQUIN [Suspect]
     Active Substance: LEVOFLOXACIN
     Indication: NEPHROLITHIASIS
     Route: 048
     Dates: start: 200412
  9. CIPROFLOXACIN. [Suspect]
     Active Substance: CIPROFLOXACIN
     Indication: EYELID MARGIN CRUSTING
     Route: 065
     Dates: start: 20131113, end: 20131115
  10. CIPROFLOXACIN. [Suspect]
     Active Substance: CIPROFLOXACIN
     Indication: EYELID MARGIN CRUSTING
     Route: 065
     Dates: start: 20140227, end: 20140301
  11. CIPROFLOXACIN. [Suspect]
     Active Substance: CIPROFLOXACIN
     Indication: EYELID MARGIN CRUSTING
     Route: 065
     Dates: start: 20120719, end: 20130927
  12. CIPROFLOXACIN. [Suspect]
     Active Substance: CIPROFLOXACIN
     Indication: DYSURIA
     Route: 065
     Dates: start: 20120719, end: 20130927
  13. LEVAQUIN [Suspect]
     Active Substance: LEVOFLOXACIN
     Indication: URINARY TRACT INFECTION
     Route: 048
     Dates: start: 20050301, end: 20050503
  14. CIPROFLOXACIN. [Suspect]
     Active Substance: CIPROFLOXACIN
     Indication: OCULAR HYPERAEMIA
     Route: 065
     Dates: start: 20140227, end: 20140301
  15. CIPROFLOXACIN. [Suspect]
     Active Substance: CIPROFLOXACIN
     Indication: URINARY TRACT INFECTION
     Route: 065
     Dates: start: 200509
  16. CIPROFLOXACIN. [Suspect]
     Active Substance: CIPROFLOXACIN
     Indication: URINARY TRACT INFECTION
     Route: 065
     Dates: start: 20061030, end: 20061031
  17. CIPROFLOXACIN. [Suspect]
     Active Substance: CIPROFLOXACIN
     Indication: DYSURIA
     Route: 065
     Dates: start: 200509
  18. CIPROFLOXACIN. [Suspect]
     Active Substance: CIPROFLOXACIN
     Indication: DYSURIA
     Route: 065
     Dates: start: 20061030, end: 20061031
  19. CIPROFLOXACIN. [Suspect]
     Active Substance: CIPROFLOXACIN
     Indication: URINARY RETENTION
     Route: 065
     Dates: start: 200509
  20. LEVAQUIN [Suspect]
     Active Substance: LEVOFLOXACIN
     Indication: FLANK PAIN
     Route: 048
     Dates: start: 20050301, end: 20050503
  21. CIPROFLOXACIN. [Suspect]
     Active Substance: CIPROFLOXACIN
     Indication: URINARY TRACT INFECTION
     Route: 065
     Dates: start: 20140227, end: 20140301
  22. CIPROFLOXACIN. [Suspect]
     Active Substance: CIPROFLOXACIN
     Indication: FLANK PAIN
     Route: 065
     Dates: start: 20061030, end: 20061031
  23. CIPROFLOXACIN. [Suspect]
     Active Substance: CIPROFLOXACIN
     Indication: FLANK PAIN
     Route: 065
     Dates: start: 20140227, end: 20140301
  24. CIPROFLOXACIN. [Suspect]
     Active Substance: CIPROFLOXACIN
     Indication: URINARY RETENTION
     Route: 065
     Dates: start: 20140227, end: 20140301
  25. LEVAQUIN [Suspect]
     Active Substance: LEVOFLOXACIN
     Indication: FLANK PAIN
     Route: 048
     Dates: start: 200412
  26. CIPROFLOXACIN. [Suspect]
     Active Substance: CIPROFLOXACIN
     Indication: URINARY TRACT INFECTION
     Route: 065
     Dates: start: 20120719, end: 20130927
  27. CIPROFLOXACIN. [Suspect]
     Active Substance: CIPROFLOXACIN
     Indication: FLANK PAIN
     Route: 065
     Dates: start: 200509
  28. CIPROFLOXACIN. [Suspect]
     Active Substance: CIPROFLOXACIN
     Indication: DYSURIA
     Route: 065
     Dates: start: 20131113, end: 20131115
  29. CIPROFLOXACIN. [Suspect]
     Active Substance: CIPROFLOXACIN
     Indication: URINARY RETENTION
     Route: 065
     Dates: start: 20131113, end: 20131115
  30. LEVAQUIN [Suspect]
     Active Substance: LEVOFLOXACIN
     Indication: URINARY TRACT INFECTION
     Route: 048
     Dates: start: 200412
  31. CIPROFLOXACIN. [Suspect]
     Active Substance: CIPROFLOXACIN
     Indication: OCULAR HYPERAEMIA
     Route: 065
     Dates: start: 20131113, end: 20131115
  32. CIPROFLOXACIN. [Suspect]
     Active Substance: CIPROFLOXACIN
     Indication: NEPHROLITHIASIS
     Route: 065
     Dates: start: 20140227, end: 20140301
  33. CIPROFLOXACIN. [Suspect]
     Active Substance: CIPROFLOXACIN
     Indication: NEPHROLITHIASIS
     Route: 065
     Dates: start: 20120719, end: 20130927
  34. LEVAQUIN [Suspect]
     Active Substance: LEVOFLOXACIN
     Indication: NEPHROLITHIASIS
     Route: 048
     Dates: start: 20050301, end: 20050503
  35. CIPROFLOXACIN. [Suspect]
     Active Substance: CIPROFLOXACIN
     Indication: EYELID MARGIN CRUSTING
     Route: 065
     Dates: start: 20061030, end: 20061031
  36. CIPROFLOXACIN. [Suspect]
     Active Substance: CIPROFLOXACIN
     Indication: EYELID MARGIN CRUSTING
     Route: 065
     Dates: start: 200509
  37. CIPROFLOXACIN. [Suspect]
     Active Substance: CIPROFLOXACIN
     Indication: OCULAR HYPERAEMIA
     Route: 065
     Dates: start: 20061030, end: 20061031
  38. CIPROFLOXACIN. [Suspect]
     Active Substance: CIPROFLOXACIN
     Indication: FLANK PAIN
     Route: 065
     Dates: start: 20131113, end: 20131115
  39. CIPROFLOXACIN. [Suspect]
     Active Substance: CIPROFLOXACIN
     Indication: URINARY RETENTION
     Route: 065
     Dates: start: 20061030, end: 20061031
  40. LEVAQUIN [Suspect]
     Active Substance: LEVOFLOXACIN
     Indication: DYSURIA
     Route: 048
     Dates: start: 200412
  41. CIPROFLOXACIN. [Suspect]
     Active Substance: CIPROFLOXACIN
     Indication: OCULAR HYPERAEMIA
     Route: 065
     Dates: start: 200509
  42. CIPROFLOXACIN. [Suspect]
     Active Substance: CIPROFLOXACIN
     Indication: URINARY TRACT INFECTION
     Route: 065
     Dates: start: 20131113, end: 20131115
  43. CIPROFLOXACIN. [Suspect]
     Active Substance: CIPROFLOXACIN
     Indication: FLANK PAIN
     Route: 065
     Dates: start: 20120719, end: 20130927
  44. CIPROFLOXACIN. [Suspect]
     Active Substance: CIPROFLOXACIN
     Indication: DYSURIA
     Route: 065
     Dates: start: 20140227, end: 20140301
  45. CIPROFLOXACIN. [Suspect]
     Active Substance: CIPROFLOXACIN
     Indication: NEPHROLITHIASIS
     Route: 065
     Dates: start: 20131113, end: 20131115

REACTIONS (2)
  - Neuropathy peripheral [Not Recovered/Not Resolved]
  - Anaphylactic reaction [Unknown]

NARRATIVE: CASE EVENT DATE: 200506
